FAERS Safety Report 13731682 (Version 2)
Quarter: 2017Q3

REPORT INFORMATION
  Report Type: Spontaneous
  Country: IT (occurrence: IT)
  Receive Date: 20170707
  Receipt Date: 20170714
  Transmission Date: 20171127
  Serious: Yes (Other)
  Sender: FDA-Public Use
  Company Number: IT-HIKMA PHARMACEUTICALS CO. LTD-2017IT008858

PATIENT

DRUGS (2)
  1. INFLIXIMAB HOSPIRA [Suspect]
     Active Substance: INFLIXIMAB
     Indication: COLITIS ULCERATIVE
     Dosage: 5 MG/KG, UNK
     Route: 042
  2. INFLIXIMAB HOSPIRA [Suspect]
     Active Substance: INFLIXIMAB
     Dosage: 10 MG/KG, UNK
     Route: 042

REACTIONS (2)
  - Drug effect decreased [Unknown]
  - Clostridium difficile infection [Recovered/Resolved]
